FAERS Safety Report 5805973-8 (Version None)
Quarter: 2008Q3

REPORT INFORMATION
  Report Type: 
  Country: None (occurrence: None)
  Receive Date: 20080710
  Receipt Date: 20080703
  Transmission Date: 20090109
  Serious: Yes (Other)
  Sender: FDA-Public Use
  Company Number: A0735229A

PATIENT
  Sex: Male

DRUGS (4)
  1. WELLBUTRIN XL [Suspect]
     Indication: DEPRESSION
     Dosage: 150MG PER DAY
     Route: 048
     Dates: start: 20080531, end: 20080603
  2. FUROSEMIDE [Concomitant]
  3. PROPRANOLOL [Concomitant]
  4. SPIRONOLACTONE [Concomitant]

REACTIONS (6)
  - DREAMY STATE [None]
  - HYPOMETABOLISM [None]
  - ILL-DEFINED DISORDER [None]
  - LIVER INJURY [None]
  - ROAD TRAFFIC ACCIDENT [None]
  - THINKING ABNORMAL [None]
